FAERS Safety Report 4294874-5 (Version None)
Quarter: 2004Q1

REPORT INFORMATION
  Report Type: 
  Country: None (occurrence: None)
  Receive Date: 20040216
  Receipt Date: 20030204
  Transmission Date: 20041129
  Serious: Yes (Other)
  Sender: FDA-Public Use
  Company Number: US-GLAXOSMITHKLINE-A0395453A

PATIENT
  Age: 49 Year
  Sex: Female

DRUGS (2)
  1. LAMICTAL [Suspect]
     Indication: DEPRESSION
     Dosage: 100MG UNKNOWN
     Route: 048
     Dates: start: 20030110, end: 20030121
  2. NO CONCURRENT MEDICATION [Concomitant]

REACTIONS (2)
  - LYMPHADENOPATHY [None]
  - THROMBOCYTOPENIA [None]
